FAERS Safety Report 15685961 (Version 1)
Quarter: 2018Q4

REPORT INFORMATION
  Report Type: Spontaneous
  Country: US (occurrence: US)
  Receive Date: 20181204
  Receipt Date: 20181204
  Transmission Date: 20190205
  Serious: No
  Sender: FDA-Public Use
  Company Number: US-SA-2018SA324835

PATIENT
  Age: 54 Year
  Sex: Female
  Weight: 77.1 kg

DRUGS (12)
  1. NORMAL SALINE [Concomitant]
     Active Substance: SODIUM CHLORIDE
     Dosage: 0.9% AS DIRECTED
     Route: 042
     Dates: start: 20161028
  2. EPINEPHRINE. [Concomitant]
     Active Substance: EPINEPHRINE
     Indication: ANAPHYLACTIC REACTION
     Dosage: 0.3 MG
     Route: 030
     Dates: start: 20161028
  3. DIPHENHYDRAMINE HYDROCHLORIDE. [Concomitant]
     Active Substance: DIPHENHYDRAMINE HYDROCHLORIDE
     Indication: ANAPHYLACTIC REACTION
     Dosage: 25MG, AS DIRECTED
     Route: 042
     Dates: start: 20161028
  4. SODIUM CHLORIDE. [Concomitant]
     Active Substance: SODIUM CHLORIDE
     Dosage: 0.9% AS DIRECTED
     Route: 042
     Dates: start: 20161028
  5. CIPRO [Concomitant]
     Active Substance: CIPROFLOXACIN HYDROCHLORIDE
     Dosage: 250 MG, BID
     Route: 048
     Dates: start: 20180202
  6. SOLU-CORTEF [Concomitant]
     Active Substance: HYDROCORTISONE SODIUM SUCCINATE
     Dosage: 100 MG, AS DIRECTED
     Route: 042
     Dates: start: 20161028
  7. CRANBERRY CONCENTRATE [ASCORBIC ACID;VACCINIUM MACROCARPON FRUIT] [Concomitant]
     Dosage: 30 MG, 1 TAB, AS DIRECTED
     Route: 048
     Dates: start: 20180426
  8. VITAMIN D3 [Concomitant]
     Active Substance: CHOLECALCIFEROL
     Dosage: 1 CAPSULE, DAILY
     Route: 048
     Dates: start: 20180518
  9. ASPIRIN [ACETYLSALICYLIC ACID] [Concomitant]
     Active Substance: ASPIRIN
     Dosage: 81 MG, 1 TABLET, DAILY
     Route: 048
     Dates: start: 20180518
  10. NEXIUM [ESOMEPRAZOLE SODIUM] [Concomitant]
     Dosage: 40 MG, QD
     Route: 048
     Dates: start: 20180518
  11. STERILE WATER [Concomitant]
     Active Substance: WATER
     Dosage: 1 EACH AS DIRECTED
     Route: 042
     Dates: start: 20161028
  12. CEREZYME [Suspect]
     Active Substance: IMIGLUCERASE
     Indication: FABRY^S DISEASE
     Dosage: 3600 UNITS, QOW
     Route: 041
     Dates: start: 20160509

REACTIONS (1)
  - Gastroenteritis viral [Unknown]

NARRATIVE: CASE EVENT DATE: 20181120
